FAERS Safety Report 11878460 (Version 1)
Quarter: 2015Q4

REPORT INFORMATION
  Report Type: Spontaneous
  Country: US (occurrence: US)
  Receive Date: 20151230
  Receipt Date: 20151230
  Transmission Date: 20160305
  Serious: Yes (Hospitalization)
  Sender: FDA-Public Use
  Company Number: US-B.I. PHARMACEUTICALS,INC./RIDGEFIELD-2015-BI-71638BP

PATIENT
  Age: 91 Year
  Sex: Female
  Weight: 52 kg

DRUGS (1)
  1. ZANTAC [Suspect]
     Active Substance: RANITIDINE HYDROCHLORIDE
     Indication: GASTROOESOPHAGEAL REFLUX DISEASE
     Dosage: 75 MG
     Route: 048
     Dates: start: 1995, end: 20151214

REACTIONS (7)
  - Sepsis [Recovered/Resolved]
  - Drug intolerance [Unknown]
  - Secretion discharge [Not Recovered/Not Resolved]
  - Fall [Recovered/Resolved]
  - Gastric disorder [Not Recovered/Not Resolved]
  - Malaise [Unknown]
  - Throat irritation [Unknown]

NARRATIVE: CASE EVENT DATE: 201507
